FAERS Safety Report 9231197 (Version 2)
Quarter: 2013Q2

REPORT INFORMATION
  Report Type: Spontaneous
  Country: US (occurrence: US)
  Receive Date: 20130415
  Receipt Date: 20130505
  Transmission Date: 20140414
  Serious: Yes (Hospitalization)
  Sender: FDA-Public Use
  Company Number: US-B.I. PHARMACEUTICALS,INC./RIDGEFIELD-2013-BI-09569BP

PATIENT
  Age: 59 Year
  Sex: Male
  Weight: 68 kg

DRUGS (5)
  1. SPIRIVA [Suspect]
     Indication: CHRONIC OBSTRUCTIVE PULMONARY DISEASE
     Dosage: 18 MCG
     Route: 055
     Dates: start: 2008
  2. SPIRIVA [Suspect]
     Route: 055
     Dates: start: 20110624
  3. SYMBICORT [Concomitant]
  4. MELOXICAM [Concomitant]
  5. PROAIR [Concomitant]

REACTIONS (3)
  - Angina pectoris [Recovered/Resolved]
  - Carotid artery occlusion [Recovered/Resolved]
  - Arteriosclerosis [Unknown]
